FAERS Safety Report 18619820 (Version 2)
Quarter: 2020Q4

REPORT INFORMATION
  Report Type: Spontaneous
  Country: US (occurrence: US)
  Receive Date: 20201215
  Receipt Date: 20201218
  Transmission Date: 20210114
  Serious: No
  Sender: FDA-Public Use
  Company Number: US-ASTRAZENECA-2020SF64800

PATIENT
  Age: 84 Year
  Sex: Female

DRUGS (2)
  1. OMEPRAZOL [Suspect]
     Active Substance: OMEPRAZOLE
     Route: 065
  2. DALIRESP [Suspect]
     Active Substance: ROFLUMILAST
     Indication: CHRONIC OBSTRUCTIVE PULMONARY DISEASE
     Dosage: 250MG OR 500MG, PATIENT WAS NOT SURE WHICH DOSAGE, ONCE A DAY IN THE MORNING
     Route: 048

REACTIONS (6)
  - Fatigue [Unknown]
  - Weight decreased [Unknown]
  - Irritability [Not Recovered/Not Resolved]
  - Confusional state [Unknown]
  - Dizziness [Unknown]
  - Insomnia [Not Recovered/Not Resolved]

NARRATIVE: CASE EVENT DATE: 2020
